FAERS Safety Report 4754231-1 (Version None)
Quarter: 2005Q3

REPORT INFORMATION
  Report Type: 
  Country: None (occurrence: None)
  Receive Date: 20050829
  Receipt Date: 20050816
  Transmission Date: 20060218
  Serious: Yes (Hospitalization)
  Sender: FDA-Public Use
  Company Number: FR-BRISTOL-MYERS SQUIBB COMPANY-13087333

PATIENT
  Age: 61 Year
  Sex: Female

DRUGS (18)
  1. PRAVASTATIN [Suspect]
     Indication: HYPERCHOLESTEROLAEMIA
     Route: 048
     Dates: end: 20050620
  2. DOLIPRANE [Suspect]
     Indication: ARTHRALGIA
     Route: 048
     Dates: start: 20041215, end: 20050630
  3. CODOLIPRANE [Suspect]
     Indication: ARTHRALGIA
     Route: 048
     Dates: start: 20041215, end: 20050630
  4. SOLIAN [Suspect]
     Route: 048
     Dates: end: 20050630
  5. LAROXYL [Suspect]
     Indication: DEPRESSION
     Route: 048
     Dates: end: 20050630
  6. ISOPTIN [Concomitant]
     Route: 048
  7. OMEPRAZOLE [Concomitant]
     Route: 048
     Dates: end: 20050630
  8. NORSET [Concomitant]
     Route: 048
     Dates: end: 20050704
  9. MYOLASTAN [Concomitant]
     Route: 048
     Dates: end: 20050630
  10. IMOVANE [Concomitant]
     Route: 048
     Dates: end: 20050630
  11. TRIATEC [Concomitant]
     Route: 048
     Dates: end: 20050705
  12. IMODIUM [Concomitant]
     Route: 048
     Dates: end: 20050630
  13. OXYCONTIN [Concomitant]
     Route: 048
     Dates: start: 20050412, end: 20050630
  14. KARDEGIC [Concomitant]
     Dosage: 100MG POWDER FOR ORAL SOLUTION.
     Route: 048
  15. OXAZEPAM [Concomitant]
     Route: 048
  16. LASILIX [Concomitant]
     Route: 048
  17. TRINIPATCH [Concomitant]
     Dosage: INTRACUTANEOUS
     Route: 023
  18. OXYNORM [Concomitant]
     Route: 048
     Dates: start: 20050412, end: 20050630

REACTIONS (11)
  - ALANINE AMINOTRANSFERASE INCREASED [None]
  - ARTHRALGIA [None]
  - ASPARTATE AMINOTRANSFERASE INCREASED [None]
  - BETA 2 MICROGLOBULIN INCREASED [None]
  - CHOLESTASIS [None]
  - DRUG ABUSER [None]
  - HEPATITIS A ANTIBODY POSITIVE [None]
  - HEPATOMEGALY [None]
  - INFLAMMATION [None]
  - SCIATICA [None]
  - URINARY TRACT INFECTION [None]
